FAERS Safety Report 18518751 (Version 3)
Quarter: 2021Q1

REPORT INFORMATION
  Report Type: Report from Study
  Country: US (occurrence: US)
  Receive Date: 20201119
  Receipt Date: 20210104
  Transmission Date: 20210419
  Serious: No
  Sender: FDA-Public Use
  Company Number: NVSC2020US307708

PATIENT
  Age: 57 Year
  Sex: Male

DRUGS (1)
  1. ENTRESTO [Suspect]
     Active Substance: SACUBITRIL\VALSARTAN
     Indication: PRODUCT USED FOR UNKNOWN INDICATION
     Dosage: 24.26 MG, BID
     Route: 048
     Dates: start: 20201101

REACTIONS (5)
  - Hypotension [Unknown]
  - Asthenia [Unknown]
  - Dyspnoea [Unknown]
  - Fatigue [Unknown]
  - Weight decreased [Unknown]

NARRATIVE: CASE EVENT DATE: 20201107
